FAERS Safety Report 6741010-9 (Version None)
Quarter: 2010Q2

REPORT INFORMATION
  Report Type: 
  Country: None (occurrence: None)
  Receive Date: 20100526
  Receipt Date: 20100514
  Transmission Date: 20101027
  Serious: Yes (Other)
  Sender: FDA-Public Use
  Company Number: US-RB-009889-10

PATIENT
  Sex: Male

DRUGS (9)
  1. MUCINEX [Suspect]
     Dosage: TOOK ONE DOSE
     Route: 048
  2. PLAVEX [Concomitant]
  3. ASPIRIN [Concomitant]
  4. AMILDIPINE [Concomitant]
     Indication: HYPERTENSION
  5. METEFORMIN [Concomitant]
  6. HYDROCHLOROTHIAZIDE [Concomitant]
  7. CLIPZIDE [Concomitant]
  8. SIMBASTASTIN [Concomitant]
  9. SLOW NIACIN [Concomitant]

REACTIONS (1)
  - EPISTAXIS [None]
